FAERS Safety Report 20901924 (Version 1)
Quarter: 2022Q2

REPORT INFORMATION
  Report Type: Spontaneous
  Country: US (occurrence: US)
  Receive Date: 20220601
  Receipt Date: 20220601
  Transmission Date: 20220720
  Serious: No
  Sender: FDA-Public Use
  Company Number: US-CELGENE-USA-20220303192

PATIENT
  Age: 65 Year
  Sex: Female
  Weight: 58.97 kg

DRUGS (3)
  1. REVLIMID [Suspect]
     Active Substance: LENALIDOMIDE
     Indication: Plasma cell myeloma
     Dosage: 10 MILLIGRAM
     Route: 048
     Dates: start: 202112
  2. REVLIMID [Suspect]
     Active Substance: LENALIDOMIDE
     Dosage: 25 MILLIGRAM
     Route: 048
     Dates: start: 202201
  3. REVLIMID [Suspect]
     Active Substance: LENALIDOMIDE
     Dosage: 21 DAYS ON 7 DAYS OFF
     Route: 048

REACTIONS (4)
  - Diarrhoea [Recovered/Resolved]
  - Pain [Recovered/Resolved]
  - Disturbance in attention [Unknown]
  - Paraesthesia [Unknown]

NARRATIVE: CASE EVENT DATE: 20220425
